FAERS Safety Report 7027931-0 (Version None)
Quarter: 2010Q4

REPORT INFORMATION
  Report Type: 
  Country: None (occurrence: None)
  Receive Date: 20101005
  Receipt Date: 20100901
  Transmission Date: 20110411
  Serious: No
  Sender: FDA-Public Use
  Company Number: US-BAYER-201026983NA

PATIENT
  Sex: Female

DRUGS (1)
  1. CLIMARA [Suspect]
     Indication: HOT FLUSH
     Dosage: CONSUMER STATED THAT 1 OF THE 4 PATCHES IN THE LAST BOX HAD NO STICKY ON IT AND FELL OFF
     Route: 062
     Dates: start: 19900101

REACTIONS (1)
  - HOT FLUSH [None]
